FAERS Safety Report 24166916 (Version 4)
Quarter: 2024Q4

REPORT INFORMATION
  Report Type: Spontaneous
  Country: US (occurrence: US)
  Receive Date: 20240802
  Receipt Date: 20241011
  Transmission Date: 20250114
  Serious: No
  Sender: LUNDBECK
  Company Number: US-LUNDBECK-DKLU4001178

PATIENT

DRUGS (3)
  1. VYEPTI [Suspect]
     Active Substance: EPTINEZUMAB-JJMR
     Indication: Migraine
     Dosage: 100 MILLIGRAM
     Route: 041
     Dates: start: 20240627
  2. UBRELVY [Concomitant]
     Active Substance: UBROGEPANT
     Indication: Migraine
  3. QULIPTA [Concomitant]
     Active Substance: ATOGEPANT
     Indication: Product used for unknown indication

REACTIONS (1)
  - Therapeutic response delayed [Recovering/Resolving]
